FAERS Safety Report 5318542-3 (Version None)
Quarter: 2007Q2

REPORT INFORMATION
  Report Type: 
  Country: None (occurrence: None)
  Receive Date: 20070501
  Receipt Date: 20070425
  Transmission Date: 20071010
  Serious: No
  Sender: FDA-Public Use
  Company Number: 070053

PATIENT
  Sex: Female

DRUGS (1)
  1. NULYTELY [Suspect]
     Indication: COLONOSCOPY

REACTIONS (1)
  - HYPERSENSITIVITY [None]
